FAERS Safety Report 20613861 (Version 1)
Quarter: 2022Q1

REPORT INFORMATION
  Report Type: Spontaneous
  Country: CN (occurrence: CN)
  Receive Date: 20220319
  Receipt Date: 20220319
  Transmission Date: 20220423
  Serious: No
  Sender: FDA-Public Use
  Company Number: CN-LUPIN PHARMACEUTICALS INC.-2022-03756

PATIENT
  Age: 43 Year
  Sex: Male

DRUGS (6)
  1. RIFAMPIN [Suspect]
     Active Substance: RIFAMPIN
     Indication: Bone tuberculosis
     Dosage: 10 MILLIGRAM/KILOGRAM, QD, {1200 MG/DAY; HREZ CHEMOTHERAPY REGIMEN
     Route: 065
  2. ETHAMBUTOL [Suspect]
     Active Substance: ETHAMBUTOL HYDROCHLORIDE
     Indication: Bone tuberculosis
     Dosage: 15 MILLIGRAM/KILOGRAM, QD, {2500 MG/DAY; HREZ CHEMOTHERAPY REGIMEN
     Route: 065
  3. PYRAZINAMIDE [Suspect]
     Active Substance: PYRAZINAMIDE
     Indication: Bone tuberculosis
     Dosage: 30 MILLIGRAM/KILOGRAM, QD, {2000 MG/DAY; HREZ CHEMOTHERAPY REGIMEN
     Route: 065
  4. ISONIAZID [Suspect]
     Active Substance: ISONIAZID
     Indication: Bone tuberculosis
     Dosage: 5 MILLIGRAM/KILOGRAM, QD
     Route: 065
  5. ISONIAZID [Suspect]
     Active Substance: ISONIAZID
     Dosage: 0.3 GRAM,
     Route: 065
  6. STREPTOMYCIN [Suspect]
     Active Substance: STREPTOMYCIN SULFATE
     Indication: Bone tuberculosis
     Dosage: 1 GRAM
     Route: 065

REACTIONS (1)
  - Hepatic function abnormal [Recovering/Resolving]
